FAERS Safety Report 19925940 (Version 1)
Quarter: 2021Q4

REPORT INFORMATION
  Report Type: Spontaneous
  Country: RU (occurrence: RU)
  Receive Date: 20211007
  Receipt Date: 20211007
  Transmission Date: 20220303
  Serious: Yes (Other)
  Sender: FDA-Public Use
  Company Number: RU-ROCHE-2928070

PATIENT
  Sex: Female

DRUGS (1)
  1. TECENTRIQ [Suspect]
     Active Substance: ATEZOLIZUMAB
     Indication: Lung neoplasm malignant
     Dosage: TOTAL OF 23 CYCLES HAVE BEEN ADMINISTERED TO DATE
     Route: 041
     Dates: start: 20200609, end: 20200721

REACTIONS (11)
  - Atrial fibrillation [Unknown]
  - Duodenal ulcer [Unknown]
  - Asthenia [Unknown]
  - Cough [Unknown]
  - Essential hypertension [Unknown]
  - Asthma [Unknown]
  - Ovarian cyst [Unknown]
  - Adrenal mass [Unknown]
  - Focal nodular hyperplasia [Unknown]
  - Lung neoplasm [Unknown]
  - Pleural neoplasm [Unknown]
